FAERS Safety Report 5522178-9 (Version None)
Quarter: 2007Q4

REPORT INFORMATION
  Report Type: 
  Country: None (occurrence: None)
  Receive Date: 20071120
  Receipt Date: 20071109
  Transmission Date: 20080405
  Serious: Yes (Other)
  Sender: FDA-Public Use
  Company Number: A0686694A

PATIENT
  Age: 74 Year
  Sex: Female
  Weight: 86.8 kg

DRUGS (3)
  1. TYKERB [Suspect]
     Indication: BREAST CANCER
     Dosage: 1250MG PER DAY
     Route: 048
     Dates: start: 20070809
  2. XELODA [Suspect]
     Indication: BREAST CANCER
     Dosage: 3500MG PER DAY
     Route: 065
     Dates: start: 20070809
  3. HUMALOG [Concomitant]

REACTIONS (7)
  - DIARRHOEA [None]
  - EATING DISORDER [None]
  - MOUTH ULCERATION [None]
  - MUCOSAL INFLAMMATION [None]
  - NAUSEA [None]
  - THERAPEUTIC RESPONSE UNEXPECTED [None]
  - VOMITING [None]
